FAERS Safety Report 18273266 (Version 8)
Quarter: 2021Q3

REPORT INFORMATION
  Report Type: Spontaneous
  Country: US (occurrence: US)
  Receive Date: 20200916
  Receipt Date: 20210930
  Transmission Date: 20211014
  Serious: Yes (Other)
  Sender: FDA-Public Use
  Company Number: US-PFIZER INC-2020319138

PATIENT
  Age: 55 Year
  Sex: Female

DRUGS (2)
  1. LYRICA [Suspect]
     Active Substance: PREGABALIN
     Dosage: 1 DF, 1X/DAY
  2. LYRICA [Suspect]
     Active Substance: PREGABALIN
     Dosage: UNK

REACTIONS (9)
  - Kidney infection [Unknown]
  - Insomnia [Unknown]
  - Dysphonia [Unknown]
  - Cough [Unknown]
  - Malaise [Unknown]
  - Feeling abnormal [Unknown]
  - Pain [Unknown]
  - Intentional product misuse [Unknown]
  - Anxiety [Unknown]
